FAERS Safety Report 10065590 (Version 1)
Quarter: 2014Q2

REPORT INFORMATION
  Report Type: Spontaneous
  Country: US (occurrence: US)
  Receive Date: 20140408
  Receipt Date: 20140408
  Transmission Date: 20141212
  Serious: Yes (Hospitalization, Other)
  Sender: FDA-Public Use
  Company Number: US-SANOFI-AVENTIS-2013SA091632

PATIENT
  Age: 72 Year
  Sex: Male

DRUGS (1)
  1. ELITEK [Suspect]
     Indication: CHRONIC LYMPHOCYTIC LEUKAEMIA
     Route: 065

REACTIONS (2)
  - Haemolysis [Recovered/Resolved]
  - Glucose-6-phosphate dehydrogenase deficiency [Unknown]
